FAERS Safety Report 12607054 (Version 1)
Quarter: 2016Q3

REPORT INFORMATION
  Report Type: Spontaneous
  Country: US (occurrence: US)
  Receive Date: 20160729
  Receipt Date: 20160729
  Transmission Date: 20161109
  Serious: Yes (Hospitalization)
  Sender: FDA-Public Use
  Company Number: US-BAYER-2016-103376

PATIENT
  Age: 69 Year
  Sex: Male

DRUGS (6)
  1. ACETYLSALICYLIC ACID({=100 MG) [Suspect]
     Active Substance: ASPIRIN
     Indication: PRODUCT USED FOR UNKNOWN INDICATION
     Dosage: UNK
     Route: 065
     Dates: end: 201304
  2. XARELTO [Interacting]
     Active Substance: RIVAROXABAN
     Indication: CORONARY ARTERY BYPASS
  3. XARELTO [Interacting]
     Active Substance: RIVAROXABAN
     Indication: CEREBROVASCULAR ACCIDENT
     Dosage: 20 MG, UNK
     Route: 048
     Dates: start: 20141217, end: 20150410
  4. XARELTO [Interacting]
     Active Substance: RIVAROXABAN
     Indication: ATRIAL FIBRILLATION
  5. XARELTO [Interacting]
     Active Substance: RIVAROXABAN
     Indication: EMBOLISM VENOUS
  6. XARELTO [Interacting]
     Active Substance: RIVAROXABAN
     Indication: THROMBOSIS PROPHYLAXIS

REACTIONS (1)
  - Gastrointestinal haemorrhage [Recovered/Resolved]

NARRATIVE: CASE EVENT DATE: 20150410
